FAERS Safety Report 13669438 (Version 1)
Quarter: 2017Q2

REPORT INFORMATION
  Report Type: Spontaneous
  Country: DK (occurrence: DK)
  Receive Date: 20170620
  Receipt Date: 20170620
  Transmission Date: 20170830
  Serious: Yes (Life-Threatening, Hospitalization)
  Sender: FDA-Public Use
  Company Number: DK-JNJFOC-20170616565

PATIENT
  Age: 82 Year
  Sex: Female

DRUGS (7)
  1. PARACETAMOL [Concomitant]
     Active Substance: ACETAMINOPHEN
     Indication: PAIN
     Route: 065
  2. METOPROLOL. [Concomitant]
     Active Substance: METOPROLOL
     Indication: CARDIOVASCULAR EVENT PROPHYLAXIS
     Route: 065
  3. MAGNESIUM HYDROXIDE. [Concomitant]
     Active Substance: MAGNESIUM HYDROXIDE
     Indication: PRODUCT USED FOR UNKNOWN INDICATION
     Route: 065
  4. GLYCERYLNITRAT [Concomitant]
     Indication: PRODUCT USED FOR UNKNOWN INDICATION
     Route: 065
  5. PANTOPRAZOLE [Concomitant]
     Active Substance: PANTOPRAZOLE
     Indication: GASTRIC ULCER
     Route: 065
  6. QUININE [Concomitant]
     Active Substance: QUININE
     Indication: MUSCLE SPASMS
     Route: 065
  7. XARELTO [Suspect]
     Active Substance: RIVAROXABAN
     Indication: THROMBOSIS PROPHYLAXIS
     Route: 048
     Dates: start: 20170218, end: 20170606

REACTIONS (3)
  - Cerebral haemorrhage [Not Recovered/Not Resolved]
  - Hemiplegia [Unknown]
  - Altered state of consciousness [Unknown]

NARRATIVE: CASE EVENT DATE: 201706
